FAERS Safety Report 21098285 (Version 1)
Quarter: 2022Q3

REPORT INFORMATION
  Report Type: Report from Study
  Country: PA (occurrence: PA)
  Receive Date: 20220719
  Receipt Date: 20220719
  Transmission Date: 20221027
  Serious: Yes (Hospitalization, Other)
  Sender: FDA-Public Use
  Company Number: PA-ABBVIE-21K-125-3731608-00

PATIENT
  Sex: Female
  Weight: 59 kg

DRUGS (4)
  1. HUMIRA [Suspect]
     Active Substance: ADALIMUMAB
     Indication: Rheumatoid arthritis
     Route: 058
     Dates: start: 20170726, end: 20220415
  2. CIPROFLOXACIN [Suspect]
     Active Substance: CIPROFLOXACIN
     Indication: Product used for unknown indication
     Route: 065
     Dates: start: 2021
  3. IODINE [Suspect]
     Active Substance: IODINE
     Indication: Product used for unknown indication
     Route: 065
     Dates: start: 20211029
  4. ADALIMUMAB [Suspect]
     Active Substance: ADALIMUMAB
     Indication: Rheumatoid arthritis
     Route: 065
     Dates: end: 20220530

REACTIONS (15)
  - Synovial cyst [Recovering/Resolving]
  - Aphasia [Recovering/Resolving]
  - Facial paralysis [Recovering/Resolving]
  - Blood potassium decreased [Unknown]
  - Blood calcium decreased [Unknown]
  - Neoplasm malignant [Not Recovered/Not Resolved]
  - Blood pressure increased [Recovering/Resolving]
  - Procedural pain [Recovering/Resolving]
  - Ear swelling [Unknown]
  - Dizziness [Recovered/Resolved]
  - Inflammation [Not Recovered/Not Resolved]
  - Swelling [Unknown]
  - Vomiting [Recovered/Resolved]
  - Hypertension [Unknown]
  - Dyspnoea [Recovered/Resolved]

NARRATIVE: CASE EVENT DATE: 20220101
